FAERS Safety Report 12964709 (Version 9)
Quarter: 2017Q1

REPORT INFORMATION
  Report Type: Spontaneous
  Country: GB (occurrence: GB)
  Receive Date: 20161122
  Receipt Date: 20170110
  Transmission Date: 20170428
  Serious: Yes (Death, Hospitalization)
  Sender: FDA-Public Use
  Company Number: GB-PFIZER INC-2016539577

PATIENT
  Age: 44 Year
  Sex: Male

DRUGS (2)
  1. BAXTER WATER FOR INJECTION [Suspect]
     Active Substance: WATER
     Indication: MEDICATION DILUTION
     Dosage: 32 ML, 5 TIMES WEEKLY (22.8571 ML (32-2)
     Route: 058
     Dates: start: 20161011, end: 201611
  2. DEFEROXAMINE MESILATE [Suspect]
     Active Substance: DEFEROXAMINE MESYLATE
     Dosage: 2.5 G, CYCLIC (5 TIMES WEEKLY) ( 1.7857 GM 2.5-)
     Route: 058
     Dates: start: 20161011, end: 201611

REACTIONS (4)
  - Aplastic anaemia [Fatal]
  - Neutropenic sepsis [Fatal]
  - Asthenia [Unknown]
  - Infection [Unknown]

NARRATIVE: CASE EVENT DATE: 2016
